FAERS Safety Report 7977213 (Version 4)
Quarter: 2012Q4

REPORT INFORMATION
  Report Type: 
  Country: US (occurrence: US)
  Receive Date: 20110607
  Receipt Date: 20120927
  Transmission Date: 20130627
  Serious: No
  Sender: FDA-Public Use
  Company Number: US-ASTRAZENECA-2009SE25908

PATIENT
  Age: 64 Year
  Sex: Female
  Weight: 65.8 kg

DRUGS (15)
  1. PRILOSEC [Suspect]
     Indication: GASTROOESOPHAGEAL REFLUX DISEASE
     Route: 048
     Dates: start: 2004
  2. PRILOSEC [Suspect]
     Indication: DUODENAL ULCER
     Route: 048
     Dates: start: 2004
  3. PRILOSEC [Suspect]
     Indication: GASTROOESOPHAGEAL REFLUX DISEASE
     Route: 048
  4. PRILOSEC [Suspect]
     Indication: DUODENAL ULCER
     Route: 048
  5. PRILOSEC [Suspect]
     Indication: GASTROOESOPHAGEAL REFLUX DISEASE
     Route: 048
  6. PRILOSEC [Suspect]
     Indication: DUODENAL ULCER
     Route: 048
  7. PRILOSEC [Suspect]
     Indication: GASTROOESOPHAGEAL REFLUX DISEASE
     Route: 048
     Dates: start: 20120818, end: 20120904
  8. PRILOSEC [Suspect]
     Indication: DUODENAL ULCER
     Route: 048
     Dates: start: 20120818, end: 20120904
  9. LIPITOR [Concomitant]
  10. VITAMINS [Concomitant]
  11. RESTORIL [Concomitant]
  12. SYNTHROID [Concomitant]
  13. ESTROGEN CREAM [Concomitant]
  14. LEVOTHYROXINE [Concomitant]
  15. ASA [Concomitant]

REACTIONS (17)
  - Paranoia [Unknown]
  - Oropharyngeal pain [Unknown]
  - Gastrooesophageal reflux disease [Unknown]
  - Dry eye [Unknown]
  - Chest discomfort [Unknown]
  - Throat tightness [Unknown]
  - Tongue coated [Unknown]
  - Abdominal pain upper [Unknown]
  - Abdominal pain upper [Unknown]
  - Flatulence [Unknown]
  - Constipation [Unknown]
  - Nausea [Unknown]
  - Malaise [Unknown]
  - Dyspepsia [Unknown]
  - Eructation [Unknown]
  - Dry mouth [Unknown]
  - Drug ineffective [Unknown]
